FAERS Safety Report 16394379 (Version 2)
Quarter: 2019Q2

REPORT INFORMATION
  Report Type: Spontaneous
  Country: US (occurrence: US)
  Receive Date: 20190605
  Receipt Date: 20190605
  Transmission Date: 20190711
  Serious: Yes (Hospitalization, Other)
  Sender: FDA-Public Use
  Company Number: US-PFIZER INC-2019234960

PATIENT
  Age: 59 Year
  Sex: Male

DRUGS (7)
  1. NARDIL [Suspect]
     Active Substance: PHENELZINE SULFATE
     Indication: DEPRESSION
     Dosage: 45 MG, DAILY
     Route: 048
     Dates: start: 19771020, end: 1978
  2. FLURAZEPAM [Concomitant]
     Active Substance: FLURAZEPAM\FLURAZEPAM HYDROCHLORIDE
     Dosage: 30 MG, DAILY
     Dates: end: 1978
  3. NARDIL [Suspect]
     Active Substance: PHENELZINE SULFATE
     Dosage: 3.2 G, UNK (PHENELZINE WAS DISCONTINUED AFTER HE HAD TAKEN A TOTAL OF 3.2 G.)
     Dates: start: 1978, end: 1978
  4. NARDIL [Suspect]
     Active Substance: PHENELZINE SULFATE
     Dosage: 60 MG, DAILY
     Dates: start: 1978, end: 1978
  5. PROBENECID. [Concomitant]
     Active Substance: PROBENECID
     Dosage: 500 MG, DAILY
     Dates: end: 1978
  6. COLCHICINE. [Concomitant]
     Active Substance: COLCHICINE
     Dosage: 0.6 MG, DAILY
     Dates: end: 1978
  7. CHLORDIAZEPOXIDE. [Concomitant]
     Active Substance: CHLORDIAZEPOXIDE
     Dosage: 30 MG, DAILY
     Dates: end: 1978

REACTIONS (2)
  - Drug-induced liver injury [Recovering/Resolving]
  - Hepatic cirrhosis [Recovering/Resolving]

NARRATIVE: CASE EVENT DATE: 1978
